FAERS Safety Report 16072578 (Version 1)
Quarter: 2019Q1

REPORT INFORMATION
  Report Type: Spontaneous
  Country: US (occurrence: US)
  Receive Date: 20190314
  Receipt Date: 20190314
  Transmission Date: 20190418
  Serious: Yes (Other)
  Sender: FDA-Public Use
  Company Number: US-ASTRAZENECA-2019SE37999

PATIENT
  Age: 42 Year
  Sex: Male

DRUGS (4)
  1. FLUPHENAZINE [Concomitant]
     Active Substance: FLUPHENAZINE
     Indication: SCHIZOPHRENIA
     Dosage: INCREASED TO 10 MG EVERY MORNING, 5 MG AT NOON, AND 10 MG EVERY EVENING
     Route: 048
  2. QUETIAPINE. [Suspect]
     Active Substance: QUETIAPINE
     Indication: SCHIZOPHRENIA
     Dosage: DAILY DOSE REDUCED TO 800 MG
     Route: 048
  3. FLUPHENAZINE [Concomitant]
     Active Substance: FLUPHENAZINE
     Indication: SCHIZOPHRENIA
     Route: 048
  4. QUETIAPINE. [Suspect]
     Active Substance: QUETIAPINE
     Indication: SCHIZOPHRENIA
     Dosage: 200 MG BY MOUTH DAILY AT 9 AM, 100 MG AT PM, AND 600 MG AT 9 PM
     Route: 048

REACTIONS (2)
  - Priapism [Recovered/Resolved]
  - Prescribed overdose [Unknown]
